FAERS Safety Report 18126489 (Version 1)
Quarter: 2020Q3

REPORT INFORMATION
  Report Type: Spontaneous
  Country: TN (occurrence: TN)
  Receive Date: 20200808
  Receipt Date: 20200808
  Transmission Date: 20201103
  Serious: Yes (Life-Threatening, Other)
  Sender: FDA-Public Use
  Company Number: NVSC2020TN219749

PATIENT
  Age: 36 Year
  Sex: Female
  Weight: 66 kg

DRUGS (1)
  1. RIBOCICLIB. [Suspect]
     Active Substance: RIBOCICLIB
     Indication: BREAST CANCER METASTATIC
     Dosage: 600 MG, QD
     Route: 048
     Dates: start: 20200525, end: 20200630

REACTIONS (4)
  - Metastases to bone [Unknown]
  - Metastases to meninges [Not Recovered/Not Resolved]
  - Malignant neoplasm progression [Not Recovered/Not Resolved]
  - Breast cancer metastatic [Not Recovered/Not Resolved]

NARRATIVE: CASE EVENT DATE: 20200701
